FAERS Safety Report 12076425 (Version 2)
Quarter: 2016Q2

REPORT INFORMATION
  Report Type: Report from Study
  Country: EE (occurrence: EE)
  Receive Date: 20160215
  Receipt Date: 20160425
  Transmission Date: 20160815
  Serious: Yes (Hospitalization, Disabling)
  Sender: FDA-Public Use
  Company Number: EE-BEH-2016058814

PATIENT
  Age: 69 Year
  Sex: Male
  Weight: 91 kg

DRUGS (4)
  1. DICLOFENAC [Concomitant]
     Active Substance: DICLOFENAC
     Indication: PAIN IN EXTREMITY
     Route: 048
     Dates: start: 20160104, end: 20160110
  2. PRIVIGEN [Suspect]
     Active Substance: HUMAN IMMUNOGLOBULIN G
     Indication: CHRONIC INFLAMMATORY DEMYELINATING POLYRADICULONEUROPATHY
     Dosage: WEEK 1 DAY 2; INITIAL RATE OF INFUSION: 50 ML/H, MAXIMUM RATE OF INFUSION: 300 ML/H
     Route: 042
     Dates: start: 20160106, end: 20160106
  3. PRIVIGEN [Suspect]
     Active Substance: HUMAN IMMUNOGLOBULIN G
     Dosage: WEEK 1 DAY 1; INITIAL RATE OF INFUSION: 30 ML/H; MAXIMUM RATE OF INFUSION: 300 ML/H
     Route: 042
     Dates: start: 20160105, end: 20160105
  4. DICLOFENAC [Concomitant]
     Active Substance: DICLOFENAC
     Indication: PERIPHERAL SWELLING
     Route: 048
     Dates: start: 20160104, end: 20160110

REACTIONS (1)
  - Pulmonary embolism [Recovered/Resolved]

NARRATIVE: CASE EVENT DATE: 20160203
